FAERS Safety Report 6582083-6 (Version None)
Quarter: 2010Q1

REPORT INFORMATION
  Report Type: 
  Country: None (occurrence: None)
  Receive Date: 20100216
  Receipt Date: 20100205
  Transmission Date: 20100710
  Serious: Yes (Other)
  Sender: FDA-Public Use
  Company Number: GB-RANBAXY-2010RR-31002

PATIENT
  Age: 41 Year
  Sex: Female

DRUGS (5)
  1. IBUPROFEN [Suspect]
     Dosage: 7 DF, UNK
     Dates: start: 20011011
  2. PARACETAMOL [Suspect]
     Dosage: UNK
     Dates: start: 20011011
  3. SEROXAT [Suspect]
     Dosage: UNK
     Dates: start: 20011011
  4. ETHANOL [Suspect]
  5. FLUOXETINE [Concomitant]
     Dosage: 40 MG, UNK

REACTIONS (3)
  - DRUG WITHDRAWAL SYNDROME [None]
  - INTENTIONAL OVERDOSE [None]
  - SUICIDE ATTEMPT [None]
